FAERS Safety Report 16655549 (Version 1)
Quarter: 2019Q3

REPORT INFORMATION
  Report Type: Spontaneous
  Country: ES (occurrence: ES)
  Receive Date: 20190801
  Receipt Date: 20190801
  Transmission Date: 20191004
  Serious: Yes (Hospitalization)
  Sender: FDA-Public Use
  Company Number: ES-SA-2019SA199127

PATIENT
  Age: 41 Year
  Sex: Male

DRUGS (5)
  1. SEPTRIN [Concomitant]
     Active Substance: SULFAMETHOXAZOLE\TRIMETHOPRIM
     Indication: PROPHYLAXIS
     Dosage: 1 DF, Q3D (800/160 1 ABOUT EVERY / 72 H)
     Route: 048
     Dates: start: 201806
  2. ALEMTUZUMAB [Suspect]
     Active Substance: ALEMTUZUMAB
     Indication: RELAPSING-REMITTING MULTIPLE SCLEROSIS
     Dosage: 12 MG, UNK
     Route: 042
     Dates: start: 20190619, end: 20190619
  3. COLECALCIFEROL [Concomitant]
     Active Substance: CHOLECALCIFEROL
     Indication: OSTEOPENIA
     Dosage: 25000 IU, Q3D (EVERY 72 HOUR)
     Route: 048
     Dates: start: 201706
  4. GABAPENTINA [Concomitant]
     Active Substance: GABAPENTIN
     Indication: PRODUCT USED FOR UNKNOWN INDICATION
     Dosage: 800 MG, Q8H
     Route: 048
     Dates: start: 201406
  5. ACICLOVIR [Concomitant]
     Active Substance: ACYCLOVIR
     Indication: PROPHYLAXIS
     Dosage: 200 UG, Q12H
     Route: 048
     Dates: start: 201806

REACTIONS (3)
  - Diarrhoea [Recovered/Resolved]
  - Vomiting [Recovered/Resolved]
  - Procalcitonin increased [Recovered/Resolved]

NARRATIVE: CASE EVENT DATE: 20190619
